FAERS Safety Report 5210538-5 (Version None)
Quarter: 2007Q1

REPORT INFORMATION
  Report Type: 
  Country: None (occurrence: None)
  Receive Date: 20070117
  Receipt Date: 20070109
  Transmission Date: 20070707
  Serious: Yes (Life-Threatening, Hospitalization)
  Sender: FDA-Public Use
  Company Number: FR-AVENTIS-200710179FR

PATIENT
  Age: 74 Year
  Sex: Female

DRUGS (5)
  1. KETEK [Suspect]
     Route: 048
     Dates: start: 20061226, end: 20061228
  2. COMBIVENT                          /01033501/ [Concomitant]
     Indication: ASTHMA
  3. SYMBICORT [Concomitant]
     Indication: ASTHMA
  4. HYPERIUM                           /00939801/ [Concomitant]
     Indication: HYPERTENSION
  5. ISOBAR                             /00987901/ [Concomitant]
     Indication: HYPERTENSION

REACTIONS (2)
  - CYTOLYTIC HEPATITIS [None]
  - VENTRICULAR EXTRASYSTOLES [None]
